FAERS Safety Report 21475494 (Version 1)
Quarter: 2022Q4

REPORT INFORMATION
  Report Type: Spontaneous
  Country: IN (occurrence: IN)
  Receive Date: 20221019
  Receipt Date: 20221019
  Transmission Date: 20230112
  Serious: Yes (Death, Hospitalization)
  Sender: FDA-Public Use
  Company Number: IN-STRIDES ARCOLAB LIMITED-2022SP013528

PATIENT
  Age: 31 Year
  Sex: Male

DRUGS (1)
  1. METHOTREXATE [Suspect]
     Active Substance: METHOTREXATE
     Indication: Psoriasis
     Dosage: 15 MILLIGRAM PER DAY (FOR TEN CONSECUTIVE DAYS) (TABLET)
     Route: 048

REACTIONS (9)
  - Toxicity to various agents [Fatal]
  - Respiratory failure [Fatal]
  - Acute kidney injury [Fatal]
  - Product administration error [Fatal]
  - Accidental overdose [Fatal]
  - Incorrect dose administered [Fatal]
  - Mucocutaneous ulceration [Not Recovered/Not Resolved]
  - Sepsis [Fatal]
  - Pancytopenia [Fatal]
